FAERS Safety Report 10904586 (Version 1)
Quarter: 2015Q1

REPORT INFORMATION
  Report Type: Spontaneous
  Country: US (occurrence: None)
  Receive Date: 20150304
  Receipt Date: 20150304
  Transmission Date: 20150721
  Serious: Yes (Other)
  Sender: FDA-Public Use
  Company Number: None

PATIENT
  Age: 56 Year
  Sex: Male

DRUGS (5)
  1. STRIBILD [Concomitant]
     Active Substance: COBICISTAT\ELVITEGRAVIR\EMTRICITABINE\TENOFOVIR DISOPROXIL FUMARATE
  2. TEMAZEPAM. [Concomitant]
     Active Substance: TEMAZEPAM
  3. CIALIS [Concomitant]
     Active Substance: TADALAFIL
  4. LORAZEPAM. [Concomitant]
     Active Substance: LORAZEPAM
  5. HARVONI [Suspect]
     Active Substance: LEDIPASVIR\SOFOSBUVIR
     Indication: HEPATITIS C
     Route: 048
     Dates: start: 20150202

REACTIONS (4)
  - Nausea [None]
  - Headache [None]
  - Irritability [None]
  - Fatigue [None]

NARRATIVE: CASE EVENT DATE: 20150202
